FAERS Safety Report 11801409 (Version 1)
Quarter: 2015Q4

REPORT INFORMATION
  Report Type: Spontaneous
  Country: US (occurrence: US)
  Receive Date: 20151204
  Receipt Date: 20151204
  Transmission Date: 20160305
  Serious: Yes (Death)
  Sender: FDA-Public Use
  Company Number: US-BAUSCH-BL-2015-029001

PATIENT
  Age: 51 Year
  Sex: Male
  Weight: 104.42 kg

DRUGS (1)
  1. XIFAXAN [Suspect]
     Active Substance: RIFAXIMIN
     Indication: HEPATIC ENCEPHALOPATHY
     Route: 048
     Dates: start: 2013

REACTIONS (1)
  - Hepatic encephalopathy [Fatal]

NARRATIVE: CASE EVENT DATE: 20151111
